FAERS Safety Report 5773860-X (Version None)
Quarter: 2008Q2

REPORT INFORMATION
  Report Type: 
  Country: None (occurrence: None)
  Receive Date: 20080601
  Receipt Date: 20080306
  Transmission Date: 20081010
  Serious: No
  Sender: FDA-Public Use
  Company Number: US200803001711

PATIENT
  Age: 67 Year
  Sex: Male
  Weight: 114.3 kg

DRUGS (11)
  1. BYETTA [Suspect]
     Indication: TYPE 2 DIABETES MELLITUS
     Dosage: 10 UG, EACH EVENING, SUBCUTANEOUS ; 10 UG, 2/D, SUBCUTANEOUS
     Route: 058
     Dates: start: 20080120, end: 20080305
  2. BYETTA [Suspect]
     Indication: TYPE 2 DIABETES MELLITUS
     Dosage: 10 UG, EACH EVENING, SUBCUTANEOUS ; 10 UG, 2/D, SUBCUTANEOUS
     Route: 058
     Dates: start: 20080306
  3. GLUCOPHAGE /USA/ (METFORMIN HYDROCHLORIDE) [Concomitant]
  4. ACTOS /USA/ (PIOGLITAZONE HYDROCHLORIDE) [Concomitant]
  5. GLUCOVANCE [Concomitant]
  6. HUMULIN  /00646001/ (INSULIN HUMAN) [Concomitant]
  7. HUMULIN N [Concomitant]
  8. LOVASTATIN [Concomitant]
  9. BENICAR HCT (HYDROCHLOROTHIAZIDE, OLMESARTAN MEDOXOMIL) [Concomitant]
  10. ATENOLOL [Concomitant]
  11. NIASPAN [Concomitant]

REACTIONS (12)
  - BLOOD CHOLESTEROL INCREASED [None]
  - BLOOD GLUCOSE DECREASED [None]
  - BLOOD GLUCOSE INCREASED [None]
  - DECREASED APPETITE [None]
  - DIARRHOEA [None]
  - DIZZINESS [None]
  - INCORRECT DOSE ADMINISTERED [None]
  - LETHARGY [None]
  - NAUSEA [None]
  - SLUGGISHNESS [None]
  - STOMACH DISCOMFORT [None]
  - WEIGHT DECREASED [None]
